FAERS Safety Report 9977610 (Version 1)
Quarter: 2014Q1

REPORT INFORMATION
  Report Type: Report from Study
  Country: US (occurrence: US)
  Receive Date: 20140306
  Receipt Date: 20140306
  Transmission Date: 20141002
  Serious: No
  Sender: FDA-Public Use
  Company Number: US-ABBVIE-13P-163-1163077-00

PATIENT
  Age: 73 Year
  Sex: Female

DRUGS (9)
  1. HUMIRA [Suspect]
     Indication: CROHN^S DISEASE
     Dates: start: 20130930, end: 20130930
  2. HUMIRA [Suspect]
     Dates: start: 20131014, end: 20131014
  3. HUMIRA [Suspect]
  4. RAMIPRIL [Concomitant]
     Indication: BLOOD PRESSURE
  5. FUROSEMIDE [Concomitant]
     Indication: DIURETIC THERAPY
  6. ALLERGY PILL [Concomitant]
     Indication: SEASONAL ALLERGY
  7. SYNTHROID [Concomitant]
     Indication: PRODUCT USED FOR UNKNOWN INDICATION
  8. ATORVASTATIN CALCIUM [Concomitant]
     Indication: BLOOD CHOLESTEROL
  9. CITALOPRAM HBR [Concomitant]
     Indication: ANTIDEPRESSANT THERAPY

REACTIONS (1)
  - Seasonal allergy [Not Recovered/Not Resolved]
